FAERS Safety Report 12542459 (Version 2)
Quarter: 2016Q3

REPORT INFORMATION
  Report Type: Spontaneous
  Country: AU (occurrence: AU)
  Receive Date: 20160708
  Receipt Date: 20160805
  Transmission Date: 20161109
  Serious: Yes (Other)
  Sender: FDA-Public Use
  Company Number: AU-BAUSCH-BL-2016-016281

PATIENT
  Sex: Female

DRUGS (1)
  1. ALDARA [Suspect]
     Active Substance: IMIQUIMOD
     Indication: BASAL CELL CARCINOMA
     Dosage: NIGHTLY
     Route: 061

REACTIONS (3)
  - Eye operation [Recovered/Resolved]
  - Corneal abrasion [Recovered/Resolved]
  - Eye pain [Recovered/Resolved]
